FAERS Safety Report 11650809 (Version 1)
Quarter: 2015Q4

REPORT INFORMATION
  Report Type: Spontaneous
  Country: US (occurrence: US)
  Receive Date: 20151021
  Receipt Date: 20151021
  Transmission Date: 20160304
  Serious: No
  Sender: FDA-Public Use
  Company Number: US-ABBVIE-13P-163-1178534-00

PATIENT
  Sex: Female

DRUGS (1)
  1. LUPRON [Suspect]
     Active Substance: LEUPROLIDE ACETATE
     Indication: PRODUCT USED FOR UNKNOWN INDICATION

REACTIONS (6)
  - Breast tenderness [Unknown]
  - Headache [Not Recovered/Not Resolved]
  - Pelvic discomfort [Unknown]
  - Feeling abnormal [Unknown]
  - Chills [Unknown]
  - Hyperhidrosis [Unknown]
